FAERS Safety Report 10088998 (Version 3)
Quarter: 2017Q1

REPORT INFORMATION
  Report Type: Report from Study
  Country: AU (occurrence: AU)
  Receive Date: 20140421
  Receipt Date: 20170223
  Transmission Date: 20170428
  Serious: Yes (Hospitalization, Other)
  Sender: FDA-Public Use
  Company Number: PHHY2014AU034315

PATIENT
  Sex: Male

DRUGS (2)
  1. SANDOSTATIN LAR DEPOT [Suspect]
     Active Substance: OCTREOTIDE ACETATE
     Indication: CARCINOID SYNDROME
     Dosage: 30 MG, UNK
     Route: 030
  2. SANDOSTATIN LAR DEPOT [Suspect]
     Active Substance: OCTREOTIDE ACETATE
     Dosage: 30 MG, UNK
     Route: 030

REACTIONS (8)
  - Hypercalcaemia [Unknown]
  - Delirium [Unknown]
  - Chronic kidney disease [Recovering/Resolving]
  - Pain [Unknown]
  - Renal failure [Unknown]
  - General physical health deterioration [Unknown]
  - Tendonitis [Recovering/Resolving]
  - Lethargy [Unknown]
